FAERS Safety Report 5872218-2 (Version None)
Quarter: 2008Q3

REPORT INFORMATION
  Report Type: 
  Country: None (occurrence: None)
  Receive Date: 20080905
  Receipt Date: 20080826
  Transmission Date: 20090109
  Serious: Yes (Other)
  Sender: FDA-Public Use
  Company Number: DE-GILEAD-2008-0017895

PATIENT
  Sex: Male
  Weight: 73 kg

DRUGS (3)
  1. ATRIPLA [Suspect]
     Route: 048
     Dates: start: 20080402
  2. SUSTIVA [Concomitant]
  3. COMBIVIR [Concomitant]

REACTIONS (3)
  - ALANINE AMINOTRANSFERASE INCREASED [None]
  - ASPARTATE AMINOTRANSFERASE INCREASED [None]
  - BLOOD CREATINE PHOSPHOKINASE INCREASED [None]
